FAERS Safety Report 17039861 (Version 3)
Quarter: 2020Q2

REPORT INFORMATION
  Report Type: Spontaneous
  Country: PT (occurrence: PT)
  Receive Date: 20191116
  Receipt Date: 20200412
  Transmission Date: 20200713
  Serious: Yes (Other)
  Sender: FDA-Public Use
  Company Number: PT-AUROBINDO-AUR-APL-2019-072259

PATIENT
  Age: 2 Year
  Sex: Female

DRUGS (16)
  1. CLINDAMYCIN. [Suspect]
     Active Substance: CLINDAMYCIN
     Indication: ENTEROCOCCAL INFECTION
     Dosage: UNK
     Route: 065
  2. VANCOMYCIN [Suspect]
     Active Substance: VANCOMYCIN
     Indication: ENTEROCOCCAL INFECTION
     Dosage: UNK
     Route: 065
  3. VANCOMYCIN [Suspect]
     Active Substance: VANCOMYCIN
     Indication: MENINGITIS PNEUMOCOCCAL
  4. IMIPENEM [Suspect]
     Active Substance: IMIPENEM
     Indication: PNEUMONIA
  5. VANCOMYCIN [Suspect]
     Active Substance: VANCOMYCIN
     Indication: PNEUMONIA
  6. AMPICILLIN [Suspect]
     Active Substance: AMPICILLIN
     Indication: MENINGITIS PNEUMOCOCCAL
  7. ALTEPLASE. [Concomitant]
     Active Substance: ALTEPLASE
     Indication: PRODUCT USED FOR UNKNOWN INDICATION
     Dosage: UNK
     Route: 065
  8. VANCOMYCIN [Suspect]
     Active Substance: VANCOMYCIN
     Indication: KLEBSIELLA INFECTION
  9. CLINDAMYCIN. [Suspect]
     Active Substance: CLINDAMYCIN
     Indication: KLEBSIELLA INFECTION
  10. CLINDAMYCIN. [Suspect]
     Active Substance: CLINDAMYCIN
     Indication: PNEUMONIA
  11. AMPICILLIN [Suspect]
     Active Substance: AMPICILLIN
     Indication: KLEBSIELLA INFECTION
  12. IMIPENEM [Suspect]
     Active Substance: IMIPENEM
     Indication: ENTEROCOCCAL INFECTION
     Dosage: UNK
     Route: 065
  13. CLINDAMYCIN. [Suspect]
     Active Substance: CLINDAMYCIN
     Indication: MENINGITIS PNEUMOCOCCAL
  14. AMPICILLIN [Suspect]
     Active Substance: AMPICILLIN
     Indication: ENTEROCOCCAL INFECTION
     Dosage: UNK
     Route: 065
  15. IMIPENEM [Suspect]
     Active Substance: IMIPENEM
     Indication: KLEBSIELLA INFECTION
  16. IMIPENEM [Suspect]
     Active Substance: IMIPENEM
     Indication: MENINGITIS PNEUMOCOCCAL

REACTIONS (3)
  - Neutropenia [Recovering/Resolving]
  - Abscess [Recovering/Resolving]
  - Drug ineffective [Unknown]
